FAERS Safety Report 10365210 (Version 1)
Quarter: 2014Q3

REPORT INFORMATION
  Report Type: Spontaneous
  Country: CH (occurrence: CH)
  Receive Date: 20140806
  Receipt Date: 20140806
  Transmission Date: 20150326
  Serious: Yes (Hospitalization, Other)
  Sender: FDA-Public Use
  Company Number: CH-TEVA-498377ISR

PATIENT
  Age: 38 Year
  Sex: Female

DRUGS (4)
  1. ESCITALOPRAM [Interacting]
     Active Substance: ESCITALOPRAM OXALATE
     Indication: MAJOR DEPRESSION
  2. ESCITALOPRAM [Suspect]
     Active Substance: ESCITALOPRAM OXALATE
     Indication: POST-TRAUMATIC STRESS DISORDER
     Dosage: [PROGRESSIVELY INCREASED]; UP TO 20 MG/DAY
     Route: 065
  3. MIRTAZAPINE. [Interacting]
     Active Substance: MIRTAZAPINE
     Indication: MAJOR DEPRESSION
     Dosage: 15 MG/DAY; AT BEDTIME
     Route: 065
  4. MIRTAZAPINE. [Interacting]
     Active Substance: MIRTAZAPINE
     Indication: SLEEP DISORDER
     Dosage: 15 MG/DAY; AT BEDTIME
     Route: 065

REACTIONS (5)
  - Drug interaction [Recovered/Resolved]
  - Suspiciousness [Recovered/Resolved]
  - Persecutory delusion [Recovered/Resolved]
  - Serotonin syndrome [Recovered/Resolved]
  - Abnormal sleep-related event [Recovered/Resolved]
